FAERS Safety Report 4855327-6 (Version None)
Quarter: 2005Q4

REPORT INFORMATION
  Report Type: 
  Country: None (occurrence: None)
  Receive Date: 20051215
  Receipt Date: 20051201
  Transmission Date: 20060501
  Serious: Yes (Other)
  Sender: FDA-Public Use
  Company Number: DE-MERCK-0512USA00706

PATIENT
  Age: 83 Year
  Sex: Male
  Weight: 65 kg

DRUGS (4)
  1. MODURETIC 5-50 [Suspect]
     Indication: HYPERTENSION
     Route: 048
     Dates: start: 19870101, end: 19920101
  2. MODURETIC 5-50 [Suspect]
     Route: 048
     Dates: start: 19920101
  3. MICARDIS [Concomitant]
     Indication: HYPERTENSION
     Route: 065
     Dates: start: 20020401
  4. METOPROLOL [Concomitant]
     Route: 048
     Dates: start: 20040601

REACTIONS (1)
  - PARKINSON'S DISEASE [None]
